FAERS Safety Report 8789779 (Version 1)
Quarter: 2012Q4

REPORT INFORMATION
  Report Type: 
  Country: US (occurrence: None)
  Receive Date: 20120911
  Receipt Date: 20120911
  Transmission Date: 20130627
  Serious: Yes (Hospitalization)
  Sender: FDA-Public Use
  Company Number: None

PATIENT
  Sex: Male
  Weight: 91.71 kg

DRUGS (3)
  1. OXALIPLATIN [Suspect]
     Dates: start: 20110330, end: 20110401
  2. CALCIUM GLUCONATE [Suspect]
  3. MAGNESIUM SULFATE [Suspect]

REACTIONS (7)
  - Nausea [None]
  - Vomiting [None]
  - Diarrhoea [None]
  - Chest discomfort [None]
  - Pyrexia [None]
  - Chills [None]
  - Hypotension [None]
